FAERS Safety Report 5295474-0 (Version None)
Quarter: 2007Q2

REPORT INFORMATION
  Report Type: 
  Country: None (occurrence: None)
  Receive Date: 20070412
  Receipt Date: 20070403
  Transmission Date: 20071010
  Serious: Yes (Life-Threatening, Hospitalization, Disabling)
  Sender: FDA-Public Use
  Company Number: JP-MERCK-0703USA02418

PATIENT
  Sex: Male
  Weight: 57 kg

DRUGS (6)
  1. HYZAAR [Suspect]
     Indication: HYPERTENSION
     Route: 048
     Dates: start: 20061225, end: 20070221
  2. URINORM [Suspect]
     Indication: HYPERURICAEMIA
     Route: 048
     Dates: start: 20061225, end: 20070221
  3. OLMETEC [Suspect]
     Indication: HYPERTENSION
     Route: 048
     Dates: start: 20070222, end: 20070307
  4. SALOBEL [Suspect]
     Indication: HYPERURICAEMIA
     Route: 048
     Dates: start: 20070222, end: 20070307
  5. ALLEGRA [Suspect]
     Indication: PRURITUS
     Route: 048
     Dates: start: 20070222, end: 20070307
  6. DEPAS [Suspect]
     Indication: PRURITUS
     Route: 048
     Dates: start: 20070222, end: 20070307

REACTIONS (2)
  - ANAEMIA [None]
  - GLOMERULONEPHRITIS RAPIDLY PROGRESSIVE [None]
